FAERS Safety Report 7297936-3 (Version None)
Quarter: 2011Q1

REPORT INFORMATION
  Report Type: 
  Country: None (occurrence: None)
  Receive Date: 20110217
  Receipt Date: 20110214
  Transmission Date: 20110831
  Serious: Yes (Death, Life-Threatening, Hospitalization)
  Sender: FDA-Public Use
  Company Number: AR-JNJFOC-20101204212

PATIENT
  Age: 52 Year
  Sex: Female
  Weight: 75 kg

DRUGS (7)
  1. METHOTREXATE [Suspect]
     Indication: RHEUMATOID ARTHRITIS
  2. GOLIMUMAB [Suspect]
     Route: 058
  3. LEFLUNOMIDE [Suspect]
     Indication: RHEUMATOID ARTHRITIS
  4. NAPROXEN [Concomitant]
     Indication: RHEUMATOID ARTHRITIS
  5. GOLIMUMAB [Suspect]
     Indication: RHEUMATOID ARTHRITIS
     Route: 058
  6. METHYLPREDNISOLONE [Suspect]
     Indication: RHEUMATOID ARTHRITIS
  7. FOLIC ACID [Concomitant]
     Indication: RHEUMATOID ARTHRITIS

REACTIONS (10)
  - HYPOKALAEMIA [None]
  - ACUTE RESPIRATORY DISTRESS SYNDROME [None]
  - BACILLUS TEST POSITIVE [None]
  - PNEUMONIA [None]
  - CANDIDA TEST POSITIVE [None]
  - KLEBSIELLA TEST POSITIVE [None]
  - GASTROINTESTINAL HAEMORRHAGE [None]
  - CRITICAL ILLNESS POLYNEUROPATHY [None]
  - ACINETOBACTER TEST POSITIVE [None]
  - HAEMODYNAMIC INSTABILITY [None]
